FAERS Safety Report 4531852-2 (Version None)
Quarter: 2004Q4

REPORT INFORMATION
  Report Type: 
  Country: None (occurrence: None)
  Receive Date: 20041220
  Receipt Date: 20041209
  Transmission Date: 20050328
  Serious: Yes (Hospitalization, Other)
  Sender: FDA-Public Use
  Company Number: DE-BRISTOL-MYERS SQUIBB COMPANY-12790721

PATIENT
  Age: 36 Year
  Sex: Male

DRUGS (4)
  1. BLEOMYCIN SULFATE [Suspect]
     Indication: TESTIS CANCER
     Dosage: DAYS 2, 9, 16
  2. ETOPOSIDE [Suspect]
     Indication: TESTIS CANCER
     Dosage: DAYS 1-5
  3. CISPLATIN [Suspect]
     Indication: TESTIS CANCER
     Dosage: DAYS 1-5
  4. ONDANSETRON [Concomitant]
     Indication: PROPHYLAXIS OF NAUSEA AND VOMITING

REACTIONS (4)
  - DIARRHOEA [None]
  - MYOCARDIAL INFARCTION [None]
  - THROMBOCYTOPENIA [None]
  - VOMITING [None]
